FAERS Safety Report 9100729 (Version 1)
Quarter: 2013Q1

REPORT INFORMATION
  Report Type: Other
  Country: IT (occurrence: IT)
  Receive Date: 20130215
  Receipt Date: 20130215
  Transmission Date: 20140127
  Serious: Yes (Life-Threatening, Other)
  Sender: FDA-Public Use
  Company Number: IT-SHIRE-ALL1-2013-00816

PATIENT
  Age: 69 Year
  Sex: Female

DRUGS (2)
  1. MEZAVANT [Suspect]
     Indication: DIVERTICULITIS
     Dosage: 1 DF, 2X/DAY:BID
     Route: 048
     Dates: start: 20121005, end: 20121027
  2. TENORMIN [Concomitant]
     Indication: PRODUCT USED FOR UNKNOWN INDICATION
     Dosage: UNK, UNKNOWN
     Route: 065

REACTIONS (5)
  - Febrile convulsion [Not Recovered/Not Resolved]
  - White blood cell count decreased [Not Recovered/Not Resolved]
  - Toothache [Not Recovered/Not Resolved]
  - Headache [Not Recovered/Not Resolved]
  - Off label use [Recovered/Resolved]
